FAERS Safety Report 24984229 (Version 1)
Quarter: 2025Q1

REPORT INFORMATION
  Report Type: Spontaneous
  Country: TR (occurrence: TR)
  Receive Date: 20250219
  Receipt Date: 20250219
  Transmission Date: 20250409
  Serious: Yes (Other)
  Sender: CELLTRION
  Company Number: TR-CELLTRION INC.-2025TR004414

PATIENT

DRUGS (2)
  1. INFLIXIMAB [Suspect]
     Active Substance: INFLIXIMAB
     Indication: Behcet^s syndrome
     Route: 050
  2. TRUXIMA [Suspect]
     Active Substance: RITUXIMAB-ABBS
     Indication: Behcet^s syndrome
     Route: 050

REACTIONS (4)
  - Cerebral venous sinus thrombosis [Unknown]
  - Anaphylactic reaction [Unknown]
  - Ataxia [Unknown]
  - Intentional product use issue [Unknown]
